FAERS Safety Report 13657382 (Version 2)
Quarter: 2017Q3

REPORT INFORMATION
  Report Type: Spontaneous
  Country: US (occurrence: US)
  Receive Date: 20170615
  Receipt Date: 20170724
  Transmission Date: 20171127
  Serious: No
  Sender: FDA-Public Use
  Company Number: US-PFIZER INC-2017214392

PATIENT
  Age: 79 Year
  Sex: Male
  Weight: 84 kg

DRUGS (10)
  1. VALSARTAN. [Concomitant]
     Active Substance: VALSARTAN
     Indication: RENAL DISORDER
  2. EFFEXOR XR [Suspect]
     Active Substance: VENLAFAXINE HYDROCHLORIDE
     Indication: ANXIETY
     Dosage: 75 MG, DAILY
     Route: 048
     Dates: start: 20170512
  3. ALPRAZOLAM. [Suspect]
     Active Substance: ALPRAZOLAM
     Dosage: 3/4 (1.66MG) IN THE EVENING]
     Route: 048
  4. ZOLOFT [Concomitant]
     Active Substance: SERTRALINE HYDROCHLORIDE
     Dosage: UNK
  5. ALPRAZOLAM. [Suspect]
     Active Substance: ALPRAZOLAM
     Indication: ANXIETY
     Dosage: 2 MG, DAILY IN THE MORNING
  6. AMLODIPINE [Concomitant]
     Active Substance: AMLODIPINE BESYLATE
     Indication: BLOOD PRESSURE ABNORMAL
     Dosage: 5 MG, 1X/DAY
     Dates: start: 2017
  7. CIPRO [Suspect]
     Active Substance: CIPROFLOXACIN HYDROCHLORIDE
     Dosage: UNK
  8. JANUVIA [Concomitant]
     Active Substance: SITAGLIPTIN PHOSPHATE
     Indication: TYPE 2 DIABETES MELLITUS
     Dosage: 100 MG, DAILY
     Route: 048
     Dates: start: 2002
  9. PENTOXIFYLLINE. [Concomitant]
     Active Substance: PENTOXIFYLLINE
     Indication: DIABETIC NEUROPATHY
     Dosage: 400 MG, [3 TIMES A DAY WITH EVERY MEAL]
     Dates: start: 2002
  10. VALSARTAN. [Concomitant]
     Active Substance: VALSARTAN
     Indication: BLOOD PRESSURE ABNORMAL
     Dosage: 160 MG, DAILY
     Route: 048
     Dates: start: 2017

REACTIONS (5)
  - Anxiety [Unknown]
  - Condition aggravated [Unknown]
  - Tremor [Unknown]
  - Diarrhoea [Unknown]
  - Insomnia [Unknown]
